FAERS Safety Report 6408311-5 (Version None)
Quarter: 2009Q4

REPORT INFORMATION
  Report Type: 
  Country: None (occurrence: None)
  Receive Date: 20091021
  Receipt Date: 20091013
  Transmission Date: 20100525
  Serious: Yes (Other)
  Sender: FDA-Public Use
  Company Number: GB-JNJFOC-20090601638

PATIENT
  Age: 2 Year

DRUGS (5)
  1. ITRACONAZOLE [Suspect]
     Indication: ANTIFUNGAL PROPHYLAXIS
     Route: 065
  2. BUSULFAN [Interacting]
     Indication: STEM CELL TRANSPLANT
     Route: 065
  3. CYCLOSPORINE [Interacting]
     Indication: PROPHYLAXIS AGAINST GRAFT VERSUS HOST DISEASE
     Route: 065
  4. CYCLOPHOSPHAMIDE [Interacting]
     Indication: STEM CELL TRANSPLANT
     Route: 065
  5. COTRIM [Interacting]
     Indication: PROPHYLAXIS
     Route: 065

REACTIONS (2)
  - ACUTE GRAFT VERSUS HOST DISEASE [None]
  - DRUG INTERACTION [None]
